FAERS Safety Report 8090238-7 (Version None)
Quarter: 2012Q1

REPORT INFORMATION
  Report Type: 
  Country: None (occurrence: None)
  Receive Date: 20120129
  Receipt Date: 20111108
  Transmission Date: 20120608
  Serious: No
  Sender: FDA-Public Use
  Company Number: US-ABBOTT-11P-163-0872476-00

PATIENT
  Sex: Male

DRUGS (3)
  1. HUMIRA [Suspect]
     Indication: PSORIATIC ARTHROPATHY
     Dosage: 40MG/0.8ML EVERY OTHER WEEK
     Route: 058
     Dates: start: 20110701
  2. HUMIRA [Suspect]
     Indication: PSORIASIS
  3. HUMIRA [Suspect]
     Indication: OSTEOARTHRITIS

REACTIONS (2)
  - NASOPHARYNGITIS [None]
  - NASAL CONGESTION [None]
